FAERS Safety Report 16569085 (Version 3)
Quarter: 2020Q1

REPORT INFORMATION
  Report Type: Spontaneous
  Country: DE (occurrence: DE)
  Receive Date: 20190713
  Receipt Date: 20200204
  Transmission Date: 20200409
  Serious: Yes (Other)
  Sender: FDA-Public Use
  Company Number: PHHY2019DE158696

PATIENT
  Sex: Male

DRUGS (3)
  1. VALSARTAN HEXAL 80 MG FILMTABLETTEN [Suspect]
     Active Substance: VALSARTAN
     Dosage: 160 MG, UNK
     Route: 065
     Dates: start: 2013, end: 201807
  2. VALSACOR [Concomitant]
     Active Substance: VALSARTAN
     Indication: PRODUCT USED FOR UNKNOWN INDICATION
     Dosage: 160 MG, UNK
     Route: 065
  3. VALSARTAN HEXAL 80 MG FILMTABLETTEN [Suspect]
     Active Substance: VALSARTAN
     Indication: HYPERTENSION
     Dosage: 80 MG, UNK
     Route: 065
     Dates: start: 2012, end: 2013

REACTIONS (19)
  - Flank pain [Unknown]
  - Folate deficiency [Unknown]
  - Vertebral foraminal stenosis [Unknown]
  - Vitamin D deficiency [Unknown]
  - Spinal osteoarthritis [Unknown]
  - Lymphadenopathy [Unknown]
  - Lymphoma [Unknown]
  - Aortic arteriosclerosis [Unknown]
  - Autonomic nervous system imbalance [Unknown]
  - Bronchitis [Unknown]
  - Night sweats [Recovered/Resolved]
  - Malabsorption [Unknown]
  - Intervertebral disc disorder [Unknown]
  - Non-Hodgkin^s lymphoma unspecified histology aggressive stage IV [Unknown]
  - Glaucoma [Unknown]
  - Renal cyst [Unknown]
  - Zinc deficiency [Unknown]
  - Lumbar spinal stenosis [Unknown]
  - Raynaud^s phenomenon [Unknown]

NARRATIVE: CASE EVENT DATE: 201801
